FAERS Safety Report 9201281 (Version 1)
Quarter: 2013Q1

REPORT INFORMATION
  Report Type: Spontaneous
  Country: US (occurrence: None)
  Receive Date: 20130320
  Receipt Date: 20130320
  Transmission Date: 20140127
  Serious: Yes (Other)
  Sender: FDA-Public Use
  Company Number: 2250051-2013-00089

PATIENT
  Sex: 0

DRUGS (1)
  1. RHOGAM ULTRA-FILTERED PLUS [Suspect]
     Indication: PRENATAL CARE
     Dates: start: 20130206, end: 20130206

REACTIONS (3)
  - Antigliadin antibody positive [None]
  - Blood bilirubin increased [None]
  - Maternal drugs affecting foetus [None]
